FAERS Safety Report 8378989-8 (Version None)
Quarter: 2012Q2

REPORT INFORMATION
  Report Type: 
  Country: None (occurrence: None)
  Receive Date: 20120523
  Receipt Date: 20120509
  Transmission Date: 20120825
  Serious: Yes (Other)
  Sender: FDA-Public Use
  Company Number: PT-RANBAXY-2012R1-56387

PATIENT
  Age: 14 Year
  Sex: Male

DRUGS (1)
  1. ISOTRETINOIN [Suspect]
     Indication: PITYRIASIS RUBRA PILARIS
     Route: 065

REACTIONS (1)
  - PEMPHIGOID [None]
